FAERS Safety Report 13133480 (Version 1)
Quarter: 2017Q1

REPORT INFORMATION
  Report Type: Spontaneous
  Country: US (occurrence: US)
  Receive Date: 20170119
  Receipt Date: 20170119
  Transmission Date: 20170428
  Serious: No
  Sender: FDA-Public Use
  Company Number: None

PATIENT
  Age: 66 Year
  Sex: Female

DRUGS (2)
  1. IBRANCE [Suspect]
     Active Substance: PALBOCICLIB
     Indication: BONE CANCER METASTATIC
     Dosage: 125MG CAP DAILY FOR 21 DAYS ON AND 7 DAYS OFF ORALLY
     Route: 048
     Dates: start: 20161219
  2. IBRANCE [Suspect]
     Active Substance: PALBOCICLIB
     Indication: BREAST CANCER FEMALE
     Dosage: 125MG CAP DAILY FOR 21 DAYS ON AND 7 DAYS OFF ORALLY
     Route: 048
     Dates: start: 20161219

REACTIONS (3)
  - Neuropathy peripheral [None]
  - Stomatitis [None]
  - Hypoaesthesia [None]

NARRATIVE: CASE EVENT DATE: 20170110
